FAERS Safety Report 23073586 (Version 1)
Quarter: 2023Q4

REPORT INFORMATION
  Report Type: Report from Study
  Country: GB (occurrence: GB)
  Receive Date: 20231017
  Receipt Date: 20231017
  Transmission Date: 20240110
  Serious: Yes (Other)
  Sender: FDA-Public Use
  Company Number: GB-002147023-NVSC2023GB216346

PATIENT
  Sex: Female

DRUGS (1)
  1. COSENTYX [Suspect]
     Active Substance: SECUKINUMAB
     Indication: Psoriatic arthropathy
     Dosage: 300 MG, QMO
     Route: 058

REACTIONS (8)
  - Pneumonia [Unknown]
  - Pain [Unknown]
  - Muscular weakness [Unknown]
  - Sensitivity to weather change [Unknown]
  - Nasopharyngitis [Unknown]
  - Device use issue [Unknown]
  - Incorrect dose administered [Unknown]
  - Drug ineffective [Unknown]
